FAERS Safety Report 10133374 (Version 2)
Quarter: 2014Q2

REPORT INFORMATION
  Report Type: Report from Study
  Country: US (occurrence: US)
  Receive Date: 20140428
  Receipt Date: 20140523
  Transmission Date: 20141212
  Serious: Yes (Death)
  Sender: FDA-Public Use
  Company Number: US-US-EMD SERONO, INC.-7284848

PATIENT
  Sex: Female

DRUGS (1)
  1. REBIF [Suspect]
     Indication: PRODUCT USED FOR UNKNOWN INDICATION
     Route: 058
     Dates: start: 20120423

REACTIONS (5)
  - Dehydration [Fatal]
  - Malaise [Fatal]
  - Abnormal behaviour [Fatal]
  - Depression [Fatal]
  - Substance abuse [Fatal]
